FAERS Safety Report 16990566 (Version 1)
Quarter: 2019Q4

REPORT INFORMATION
  Report Type: Spontaneous
  Country: FR (occurrence: FR)
  Receive Date: 20191104
  Receipt Date: 20191104
  Transmission Date: 20200122
  Serious: Yes (Other)
  Sender: FDA-Public Use
  Company Number: FR-JUBILANT CADISTA PHARMACEUTICALS-2019JUB00406

PATIENT
  Age: 49 Year
  Sex: Female

DRUGS (6)
  1. FLUOROURACIL. [Concomitant]
     Active Substance: FLUOROURACIL
     Route: 065
  2. METHYLPREDNISOLONE. [Suspect]
     Active Substance: METHYLPREDNISOLONE
     Indication: PREMEDICATION
     Route: 065
  3. BEVACIZUMAB. [Concomitant]
     Active Substance: BEVACIZUMAB
     Route: 065
  4. LEUCOVORIN. [Suspect]
     Active Substance: LEUCOVORIN
     Indication: COLORECTAL ADENOCARCINOMA
     Route: 065
  5. OXALIPLATIN. [Suspect]
     Active Substance: OXALIPLATIN
     Indication: COLORECTAL ADENOCARCINOMA
     Route: 065
  6. ONDANSETRON [Concomitant]
     Active Substance: ONDANSETRON
     Route: 065

REACTIONS (1)
  - Immune thrombocytopenic purpura [Recovered/Resolved]

NARRATIVE: CASE EVENT DATE: 201102
